FAERS Safety Report 4506619-1 (Version None)
Quarter: 2004Q4

REPORT INFORMATION
  Report Type: 
  Country: None (occurrence: None)
  Receive Date: 20041122
  Receipt Date: 20040504
  Transmission Date: 20050328
  Serious: Yes (Hospitalization)
  Sender: FDA-Public Use
  Company Number: FR-MERCK-0405FRA00015

PATIENT
  Age: 84 Year
  Sex: Female
  Weight: 46 kg

DRUGS (1)
  1. NOROXIN [Suspect]
     Indication: URINARY TRACT INFECTION
     Route: 048
     Dates: start: 20040320, end: 20040404

REACTIONS (2)
  - BONE MARROW DEPRESSION [None]
  - PANCYTOPENIA [None]
